FAERS Safety Report 17605682 (Version 1)
Quarter: 2020Q1

REPORT INFORMATION
  Report Type: Spontaneous
  Country: US (occurrence: US)
  Receive Date: 20200331
  Receipt Date: 20200331
  Transmission Date: 20200409
  Serious: No
  Sender: FDA-Public Use
  Company Number: US-ELI_LILLY_AND_COMPANY-US202003011341

PATIENT
  Age: 48 Year
  Sex: Female

DRUGS (2)
  1. TRULICITY [Suspect]
     Active Substance: DULAGLUTIDE
     Indication: PRODUCT USED FOR UNKNOWN INDICATION
     Dosage: UNK, WEEKLY (1/W)
     Route: 065
  2. TRULICITY [Suspect]
     Active Substance: DULAGLUTIDE
     Dosage: UNK, WEEKLY (1/W)
     Route: 065

REACTIONS (17)
  - Hypoglycaemia [Unknown]
  - Nausea [Recovering/Resolving]
  - Abdominal distension [Unknown]
  - Malaise [Unknown]
  - Metabolic disorder [Unknown]
  - Poisoning [Unknown]
  - Product storage error [Unknown]
  - Hypersensitivity [Unknown]
  - Chromaturia [Unknown]
  - Nasal dryness [Unknown]
  - Blood glucose decreased [Unknown]
  - Stress [Unknown]
  - Vomiting [Unknown]
  - Injection site induration [Unknown]
  - Muscle twitching [Unknown]
  - Tremor [Recovering/Resolving]
  - Nasopharyngitis [Unknown]

NARRATIVE: CASE EVENT DATE: 20200323
